FAERS Safety Report 10700990 (Version 1)
Quarter: 2015Q1

REPORT INFORMATION
  Report Type: Spontaneous
  Country: FR (occurrence: FR)
  Receive Date: 20150109
  Receipt Date: 20150109
  Transmission Date: 20150721
  Serious: Yes (Hospitalization)
  Sender: FDA-Public Use
  Company Number: FR-PFIZER INC-2015002317

PATIENT
  Age: 34 Year
  Sex: Male

DRUGS (22)
  1. EPIVIR [Suspect]
     Active Substance: LAMIVUDINE
     Indication: HIV TEST POSITIVE
     Dosage: 50 MG, 1X/DAY
     Route: 048
     Dates: start: 20100115
  2. ARANESP [Concomitant]
     Active Substance: DARBEPOETIN ALFA
  3. ZIAGEN [Suspect]
     Active Substance: ABACAVIR SULFATE
     Dosage: 300 MG, 2X/DAY
     Route: 048
     Dates: start: 20100115
  4. OMEPRAZOLE. [Suspect]
     Active Substance: OMEPRAZOLE
     Dosage: 20 MG, 1X/DAY
     Route: 048
  5. NOVORAPID [Concomitant]
     Active Substance: INSULIN ASPART
  6. SPECIAFOLDINE [Concomitant]
     Active Substance: FOLIC ACID
     Dosage: UNK
     Dates: end: 2010
  7. RIVOTRIL [Concomitant]
     Active Substance: CLONAZEPAM
  8. RENITEC [Concomitant]
     Active Substance: ENALAPRIL MALEATE
  9. LAMALINE [Concomitant]
     Active Substance: ACETAMINOPHEN\CAFFEINE\OPIUM
  10. LASILIX [Concomitant]
     Active Substance: FUROSEMIDE
     Dosage: UNK
     Dates: end: 2010
  11. LANTUS [Concomitant]
     Active Substance: INSULIN GLARGINE
  12. DEBRIDAT [Concomitant]
     Active Substance: TRIMEBUTINE MALEATE
     Dosage: UNK
     Dates: end: 2010
  13. LEVOCARNIL [Concomitant]
     Active Substance: LEVOCARNITINE
  14. KALETRA [Suspect]
     Active Substance: LOPINAVIR\RITONAVIR
     Indication: HIV TEST POSITIVE
     Dosage: 2 DF, 2X/DAY
     Route: 048
     Dates: start: 20100115, end: 201301
  15. TRIFLUCAN [Concomitant]
     Active Substance: FLUCONAZOLE
     Dosage: 400 MG, 1X/DAY
     Dates: start: 20100322, end: 201009
  16. NEURONTIN [Concomitant]
     Active Substance: GABAPENTIN
     Dosage: UNK
     Dates: start: 201003
  17. KAYEXALATE [Concomitant]
     Active Substance: SODIUM POLYSTYRENE SULFONATE
  18. CARDENSIEL [Concomitant]
     Active Substance: BISOPROLOL FUMARATE
  19. VENOFER [Concomitant]
     Active Substance: IRON SUCROSE
  20. HEXAQUINE [Concomitant]
     Active Substance: NIAOULI OIL\QUININE BENZOATE\THIAMINE HYDROCHLORIDE
  21. ZYVOXID [Suspect]
     Active Substance: LINEZOLID
     Dosage: 600 MG, 2X/DAY
     Route: 048
     Dates: start: 20100411, end: 2010
  22. PREVISCAN [Concomitant]
     Active Substance: FLUINDIONE
     Dosage: UNK
     Dates: end: 2010

REACTIONS (4)
  - Polyneuropathy [Recovered/Resolved with Sequelae]
  - Pain in extremity [Recovered/Resolved with Sequelae]
  - Paraesthesia [Recovered/Resolved with Sequelae]
  - Motor dysfunction [Recovered/Resolved with Sequelae]

NARRATIVE: CASE EVENT DATE: 201002
